FAERS Safety Report 5265894-9 (Version None)
Quarter: 2007Q1

REPORT INFORMATION
  Report Type: 
  Country: None (occurrence: None)
  Receive Date: 20070315
  Receipt Date: 20070306
  Transmission Date: 20070707
  Serious: Yes (Life-Threatening, Hospitalization, Other)
  Sender: FDA-Public Use
  Company Number: HQWYE328810AUG06

PATIENT
  Sex: Female
  Weight: 52 kg

DRUGS (10)
  1. MYLOTARG [Suspect]
     Indication: ACUTE MYELOID LEUKAEMIA RECURRENT
     Route: 041
     Dates: start: 20060201, end: 20060201
  2. MYLOTARG [Suspect]
     Route: 041
     Dates: start: 20060221, end: 20060221
  3. FUNGUARD [Concomitant]
     Indication: SINUSITIS ASPERGILLUS
     Route: 041
     Dates: start: 20060207, end: 20060407
  4. VFEND [Concomitant]
     Indication: SINUSITIS ASPERGILLUS
     Route: 041
     Dates: start: 20060302, end: 20060407
  5. VFEND [Concomitant]
     Route: 048
     Dates: start: 20060408
  6. MUCOSTA [Concomitant]
     Indication: PROPHYLAXIS
     Route: 048
     Dates: start: 20060201
  7. NORVASC [Concomitant]
     Indication: HYPERTENSION
     Route: 048
     Dates: start: 20060201
  8. AMOBAN [Concomitant]
     Indication: INSOMNIA
     Route: 048
     Dates: start: 20060201
  9. MAXIPIME [Concomitant]
     Route: 041
     Dates: start: 20060203, end: 20060220
  10. BAKTAR [Concomitant]
     Indication: PROPHYLAXIS
     Route: 048
     Dates: start: 20060201

REACTIONS (4)
  - INFUSION RELATED REACTION [None]
  - LARYNGEAL OEDEMA [None]
  - NEUTROPENIA [None]
  - SINUSITIS ASPERGILLUS [None]
